FAERS Safety Report 6204058-9 (Version None)
Quarter: 2009Q2

REPORT INFORMATION
  Report Type: 
  Country: None (occurrence: None)
  Receive Date: 20090526
  Receipt Date: 20090526
  Transmission Date: 20091009
  Serious: No
  Sender: FDA-Public Use
  Company Number: None

PATIENT
  Age: 60 Year
  Sex: Female
  Weight: 83.9154 kg

DRUGS (2)
  1. CYMBALTA [Suspect]
     Indication: DEPRESSION
     Dosage: 20 MG DAILY PO
     Route: 048
     Dates: start: 20080129, end: 20090515
  2. CYMBALTA [Suspect]
     Indication: GENERALISED ANXIETY DISORDER
     Dosage: 20 MG DAILY PO
     Route: 048
     Dates: start: 20080129, end: 20090515

REACTIONS (3)
  - DISCOMFORT [None]
  - GAIT DISTURBANCE [None]
  - PAIN IN EXTREMITY [None]
